FAERS Safety Report 24309540 (Version 1)
Quarter: 2024Q3

REPORT INFORMATION
  Report Type: Spontaneous
  Country: US (occurrence: US)
  Receive Date: 20240912
  Receipt Date: 20240912
  Transmission Date: 20241017
  Serious: Yes (Other)
  Sender: BRISTOL MYERS SQUIBB
  Company Number: US-BRISTOL-MYERS SQUIBB COMPANY-2024-142241

PATIENT
  Age: 90 Year
  Sex: Male

DRUGS (1)
  1. REVLIMID [Suspect]
     Active Substance: LENALIDOMIDE
     Indication: Diffuse large B-cell lymphoma
     Dosage: DOSE : 15 MG;     FREQ : 15 MG ORAL CAPSULES DAILY FOR 21 DAYS AND 7 DAYS OFF
     Route: 048
     Dates: start: 20230220

REACTIONS (2)
  - Squamous cell carcinoma [Unknown]
  - Off label use [Unknown]
